FAERS Safety Report 7360982-5 (Version None)
Quarter: 2011Q1

REPORT INFORMATION
  Report Type: 
  Country: None (occurrence: None)
  Receive Date: 20110318
  Receipt Date: 20101229
  Transmission Date: 20110831
  Serious: No
  Sender: FDA-Public Use
  Company Number: US-BAYER-2011-023906

PATIENT
  Sex: Female
  Weight: 57 kg

DRUGS (4)
  1. ALEVE (CAPLET) [Suspect]
     Indication: ANALGESIC THERAPY
     Dosage: UNK
     Route: 048
     Dates: start: 20100101
  2. MOTRIN [Concomitant]
     Indication: DYSMENORRHOEA
  3. MOTRIN [Concomitant]
     Indication: ABDOMINAL PAIN UPPER
  4. HYDROCHLOROTHIAZIDE [Concomitant]

REACTIONS (4)
  - ABDOMINAL DISCOMFORT [None]
  - VOMITING [None]
  - SOMNOLENCE [None]
  - HEART RATE INCREASED [None]
